FAERS Safety Report 12891497 (Version 1)
Quarter: 2016Q4

REPORT INFORMATION
  Report Type: Report from Study
  Country: None (occurrence: US)
  Receive Date: 20161028
  Receipt Date: 20161028
  Transmission Date: 20170207
  Serious: Yes (Other)
  Sender: FDA-Public Use
  Company Number: US-ABBVIE-16K-163-1760558-00

PATIENT
  Sex: Female

DRUGS (1)
  1. HUMIRA [Suspect]
     Active Substance: ADALIMUMAB
     Indication: RHEUMATOID ARTHRITIS
     Route: 058

REACTIONS (4)
  - Fatigue [Not Recovered/Not Resolved]
  - Seborrhoeic keratosis [Recovering/Resolving]
  - Procedural pain [Not Recovered/Not Resolved]
  - Carpal tunnel decompression [Unknown]
